FAERS Safety Report 5490468-4 (Version None)
Quarter: 2007Q4

REPORT INFORMATION
  Report Type: 
  Country: None (occurrence: None)
  Receive Date: 20071017
  Receipt Date: 20071017
  Transmission Date: 20080405
  Serious: Yes (Other)
  Sender: FDA-Public Use
  Company Number: None

PATIENT
  Age: 35 Year
  Sex: Male

DRUGS (1)
  1. ENBREL [Suspect]
     Indication: PSORIATIC ARTHROPATHY
     Dosage: 50 MG  ONCE WEEKLY  SQ
     Route: 058
     Dates: start: 20070907, end: 20071016

REACTIONS (2)
  - ABDOMINAL PAIN [None]
  - DIZZINESS [None]
